FAERS Safety Report 5733907-3 (Version None)
Quarter: 2008Q2

REPORT INFORMATION
  Report Type: 
  Country: None (occurrence: None)
  Receive Date: 20080509
  Receipt Date: 20080415
  Transmission Date: 20081010
  Serious: No
  Sender: FDA-Public Use
  Company Number: US-BOEHRINGER INGELHEIM GMBH, GERMANY-2008-BP-05909BP

PATIENT
  Age: 40 Year
  Sex: Female

DRUGS (14)
  1. MIRAPEX [Suspect]
     Indication: RESTLESS LEGS SYNDROME
     Route: 048
     Dates: start: 20080407
  2. NEURONTIN [Concomitant]
     Indication: NEUROPATHY PERIPHERAL
  3. LANTUS [Concomitant]
     Indication: TYPE 1 DIABETES MELLITUS
  4. NOVOLIN INSULIN [Concomitant]
     Indication: TYPE 1 DIABETES MELLITUS
  5. NEXIUM [Concomitant]
     Indication: GASTROOESOPHAGEAL REFLUX DISEASE
  6. SPIRONOLACTONE [Concomitant]
     Indication: OEDEMA
  7. ZANAFLEX [Concomitant]
     Indication: MUSCLE RELAXANT THERAPY
  8. FUROSEMIDE [Concomitant]
     Indication: OEDEMA
  9. LISINOPRIL [Concomitant]
     Indication: HYPERTENSION
  10. SYNTHROID [Concomitant]
     Indication: THYROID DISORDER
  11. CLONIDINE [Concomitant]
     Indication: BLOOD PRESSURE
  12. ZOFRAN [Concomitant]
     Indication: NAUSEA
  13. ACTIZELLA [Concomitant]
     Indication: HORMONE LEVEL ABNORMAL
  14. IBUPROFEN TABLETS [Concomitant]
     Indication: PAIN

REACTIONS (2)
  - CONDITION AGGRAVATED [None]
  - PAIN IN EXTREMITY [None]
